FAERS Safety Report 23109574 (Version 1)
Quarter: 2023Q4

REPORT INFORMATION
  Report Type: Report from Study
  Country: ES (occurrence: ES)
  Receive Date: 20231026
  Receipt Date: 20231026
  Transmission Date: 20240110
  Serious: Yes (Hospitalization)
  Sender: FDA-Public Use
  Company Number: None

PATIENT
  Age: 37 Year
  Sex: Female

DRUGS (6)
  1. FENTANYL [Suspect]
     Active Substance: FENTANYL\FENTANYL CITRATE
     Indication: Pain
     Dosage: FENTANYL (1543A)
     Dates: start: 20230626, end: 20230626
  2. ZALDIAR [Suspect]
     Active Substance: ACETAMINOPHEN\TRAMADOL HYDROCHLORIDE
     Indication: Pain
     Dosage: ZALDIAR 37.5 MG/325 MG FILM-COATED TABLETS, 20 TABLETS
     Dates: start: 20230626, end: 20230626
  3. LYRICA [Concomitant]
     Active Substance: PREGABALIN
     Indication: Anxiety
     Dosage: LYRICA 150 MG HARD CAPSULES, 56 CAPSULES
     Dates: start: 202303
  4. OMEPRAZOLE [Concomitant]
     Active Substance: OMEPRAZOLE
     Indication: Gastritis prophylaxis
     Dosage: OMEPRAZOL (2141A)
     Dates: start: 202303
  5. MIRTAZAPINE [Concomitant]
     Active Substance: MIRTAZAPINE
     Indication: Anxiety
     Dosage: MIRTAZAPIN (2704A)
     Dates: start: 202303
  6. TRAMADOL HYDROCHLORIDE [Concomitant]
     Active Substance: TRAMADOL HYDROCHLORIDE
     Indication: Pain
     Dosage: TRAMADOL HYDROCHLORIDE (2389CH)
     Dates: start: 202303

REACTIONS (3)
  - Hepatic cytolysis [Recovering/Resolving]
  - Hyperbilirubinaemia [Recovering/Resolving]
  - Intentional overdose [Recovered/Resolved]

NARRATIVE: CASE EVENT DATE: 20230626
